FAERS Safety Report 18963763 (Version 1)
Quarter: 2021Q1

REPORT INFORMATION
  Report Type: Report from Study
  Country: CA (occurrence: CA)
  Receive Date: 20210303
  Receipt Date: 20210303
  Transmission Date: 20210420
  Serious: Yes (Hospitalization)
  Sender: FDA-Public Use
  Company Number: CA-JNJFOC-20201238692

PATIENT
  Age: 68 Year
  Sex: Female

DRUGS (15)
  1. SELEXIPAG [Suspect]
     Active Substance: SELEXIPAG
     Route: 048
  2. PANTOPRAZOLE [Concomitant]
     Active Substance: PANTOPRAZOLE
  3. SYNTHROID [Concomitant]
     Active Substance: LEVOTHYROXINE SODIUM
  4. LIPITOR [Concomitant]
     Active Substance: ATORVASTATIN CALCIUM
  5. SELEXIPAG [Suspect]
     Active Substance: SELEXIPAG
     Indication: PULMONARY ARTERIAL HYPERTENSION
     Route: 048
     Dates: start: 20200825
  6. SELEXIPAG [Suspect]
     Active Substance: SELEXIPAG
     Indication: CONNECTIVE TISSUE DISORDER
     Route: 048
  7. MACITENTAN [Suspect]
     Active Substance: MACITENTAN
     Indication: PULMONARY ARTERIAL HYPERTENSION
     Route: 048
     Dates: start: 20180912
  8. ATROVENT [Concomitant]
     Active Substance: IPRATROPIUM BROMIDE
  9. MACITENTAN [Suspect]
     Active Substance: MACITENTAN
     Indication: CONNECTIVE TISSUE DISORDER
  10. ELIQUIS [Concomitant]
     Active Substance: APIXABAN
  11. SELEXIPAG [Suspect]
     Active Substance: SELEXIPAG
     Route: 048
  12. VITAMIN C [Concomitant]
     Active Substance: ASCORBIC ACID
  13. SPIRIVA [Concomitant]
     Active Substance: TIOTROPIUM BROMIDE MONOHYDRATE
  14. ADCIRCA [Concomitant]
     Active Substance: TADALAFIL
  15. VENTOLIN [Concomitant]
     Active Substance: ALBUTEROL SULFATE

REACTIONS (8)
  - Fatigue [Unknown]
  - Haemoglobin decreased [Unknown]
  - Gait disturbance [Unknown]
  - Dyspnoea [Unknown]
  - Dizziness [Unknown]
  - Urinary tract infection [Unknown]
  - Limb discomfort [Not Recovered/Not Resolved]
  - Immune system disorder [Not Recovered/Not Resolved]

NARRATIVE: CASE EVENT DATE: 20210202
